FAERS Safety Report 8409119-1 (Version None)
Quarter: 2012Q2

REPORT INFORMATION
  Report Type: 
  Country: None (occurrence: None)
  Receive Date: 20120604
  Receipt Date: 20120601
  Transmission Date: 20120825
  Serious: Yes (Hospitalization, Other)
  Sender: FDA-Public Use
  Company Number: GB-ABBOTT-09P-167-0501273-00

PATIENT
  Age: 9 Year
  Sex: Male

DRUGS (8)
  1. CLOBAZAM [Interacting]
     Indication: CONVULSION PROPHYLAXIS
     Dosage: NOT REPORTED
  2. VALPROATE SODIUM [Suspect]
     Indication: CONVULSION PROPHYLAXIS
  3. VALPROATE SODIUM [Suspect]
  4. LAMOTRIGINE [Interacting]
  5. LEVETIRACETAM [Concomitant]
     Indication: PRODUCT USED FOR UNKNOWN INDICATION
  6. ETHOSUXIMIDE [Interacting]
     Indication: CONVULSION PROPHYLAXIS
  7. PREDNISOLONE [Concomitant]
     Indication: PRODUCT USED FOR UNKNOWN INDICATION
  8. LAMOTRIGINE [Interacting]
     Indication: CONVULSION PROPHYLAXIS

REACTIONS (4)
  - NECROSIS [None]
  - SWEAT GLAND DISORDER [None]
  - BLISTER [None]
  - DRUG INTERACTION [None]
